FAERS Safety Report 14698629 (Version 1)
Quarter: 2018Q1

REPORT INFORMATION
  Report Type: Spontaneous
  Country: SG (occurrence: SG)
  Receive Date: 20180330
  Receipt Date: 20180330
  Transmission Date: 20180509
  Serious: Yes (Life-Threatening, Hospitalization, Other)
  Sender: FDA-Public Use
  Company Number: SG-ACCORD-064911

PATIENT
  Age: 44 Year
  Sex: Female

DRUGS (2)
  1. COLCHICINE. [Concomitant]
     Active Substance: COLCHICINE
     Indication: GOUT
  2. ALLOPURINOL. [Suspect]
     Active Substance: ALLOPURINOL
     Indication: GOUT

REACTIONS (4)
  - Creatinine renal clearance increased [Unknown]
  - Cardiac disorder [Unknown]
  - Hepatic function abnormal [Unknown]
  - Drug reaction with eosinophilia and systemic symptoms [Unknown]
